FAERS Safety Report 12640426 (Version 1)
Quarter: 2016Q3

REPORT INFORMATION
  Report Type: Report from Study
  Country: US (occurrence: US)
  Receive Date: 20160810
  Receipt Date: 20160810
  Transmission Date: 20161109
  Serious: Yes (Hospitalization)
  Sender: FDA-Public Use
  Company Number: US-MALLINCKRODT-T201603410

PATIENT
  Age: 45 Year
  Sex: Female

DRUGS (2)
  1. REPOSITORY CORTICOTROPIN INJECTION [Suspect]
     Active Substance: CORTICOTROPIN
     Indication: SYSTEMIC LUPUS ERYTHEMATOSUS
     Dosage: UNK
     Route: 065
     Dates: start: 2015
  2. REPOSITORY CORTICOTROPIN INJECTION [Suspect]
     Active Substance: CORTICOTROPIN
     Dosage: 0.5 ML/40 UNITS 2X/WK
     Route: 058
     Dates: start: 20160404

REACTIONS (5)
  - Rash [Unknown]
  - Peripheral swelling [Recovering/Resolving]
  - Influenza like illness [Unknown]
  - Pyrexia [Unknown]
  - Onychomadesis [Unknown]

NARRATIVE: CASE EVENT DATE: 20151116
